FAERS Safety Report 6108480-0 (Version None)
Quarter: 2009Q1

REPORT INFORMATION
  Report Type: 
  Country: None (occurrence: None)
  Receive Date: 20090309
  Receipt Date: 20090306
  Transmission Date: 20090719
  Serious: Yes (Death, Hospitalization)
  Sender: FDA-Public Use
  Company Number: JP-B.I. PHARMACEUTICALS,INC./RIDGEFIELD-2009-BP-01915NB

PATIENT
  Sex: Male

DRUGS (5)
  1. SPIRIVA [Suspect]
     Indication: CHRONIC OBSTRUCTIVE PULMONARY DISEASE
     Dosage: 18MCG
     Route: 055
     Dates: start: 20081230, end: 20090106
  2. THEO-DUR [Concomitant]
     Indication: EMPHYSEMA
     Dosage: 400MG
     Route: 048
  3. HOKUNALIN:TAPE [Concomitant]
     Indication: EMPHYSEMA
     Dosage: 2MG
     Route: 062
  4. LASIX [Concomitant]
     Indication: PULMONARY HYPERTENSION
     Dosage: 10MG
     Route: 048
  5. GASTER D [Concomitant]
     Dosage: 20MG
     Route: 048

REACTIONS (2)
  - INTESTINAL OBSTRUCTION [None]
  - PNEUMONIA ASPIRATION [None]
